FAERS Safety Report 7888815-9 (Version None)
Quarter: 2011Q4

REPORT INFORMATION
  Report Type: 
  Country: None (occurrence: None)
  Receive Date: 20111103
  Receipt Date: 20111031
  Transmission Date: 20120403
  Serious: Yes (Other)
  Sender: FDA-Public Use
  Company Number: US-PFIZER INC-2010009231

PATIENT
  Sex: Male

DRUGS (1)
  1. CHANTIX [Suspect]
     Indication: SMOKING CESSATION THERAPY
     Dosage: 1 MG, UNK
     Route: 048
     Dates: start: 20070401, end: 20070601

REACTIONS (5)
  - IMPAIRED DRIVING ABILITY [None]
  - DEPRESSION [None]
  - SUICIDE ATTEMPT [None]
  - MOOD ALTERED [None]
  - ABNORMAL BEHAVIOUR [None]
